FAERS Safety Report 8493858-0 (Version None)
Quarter: 2012Q3

REPORT INFORMATION
  Report Type: 
  Country: None (occurrence: None)
  Receive Date: 20120706
  Receipt Date: 20120626
  Transmission Date: 20120928
  Serious: Yes (Hospitalization)
  Sender: FDA-Public Use
  Company Number: PHHO2011US12436

PATIENT
  Sex: Female
  Weight: 79.3 kg

DRUGS (27)
  1. BLINDED NO TREATMENT RECEIVED [Suspect]
     Indication: CARDIOVASCULAR DISORDER
     Dosage: CODE NOT BROKEN
     Route: 048
     Dates: start: 20090619, end: 20110709
  2. LANTUS [Suspect]
     Indication: TYPE 2 DIABETES MELLITUS
     Dosage: 45 IU, QD
     Route: 058
     Dates: end: 20110801
  3. NOVOLOG [Suspect]
     Indication: TYPE 2 DIABETES MELLITUS
     Dosage: 46 IU, BID
     Route: 058
     Dates: end: 20110801
  4. WELLBUTRIN [Concomitant]
  5. DILTIAZEM HYDROCHOLORIDE [Suspect]
     Indication: HYPERTENSION
     Dosage: 180 MG, UNK
     Route: 048
     Dates: start: 20090219
  6. ALKA-SELTZER [Concomitant]
     Indication: PROPHYLAXIS
     Dosage: 1-2 TABS
     Dates: start: 20080101
  7. MEVACOR [Concomitant]
  8. HYDROCHLOROTHIAZIDE [Suspect]
     Dosage: 25 MG, QD
     Route: 048
     Dates: end: 20110801
  9. IRBESARTAN [Suspect]
     Dosage: 75 MG, Q5W
     Dates: end: 20110801
  10. COLACE [Concomitant]
     Dosage: 100 MG, QD
     Route: 048
     Dates: start: 20110714
  11. FLUTICASONE PROPIONATE [Concomitant]
     Dosage: 25 DF (5 UG / SPRAY), EACH NOSTRIL, QD
  12. LEVOTHYROXINE SODIUM [Concomitant]
     Dosage: 50 UG, QD
     Route: 048
  13. AVAPRO [Concomitant]
     Dosage: 75 MG, QD
     Route: 048
  14. NIACIN [Concomitant]
     Dosage: 1000 MG, QD
  15. SYNTHROID [Concomitant]
  16. MULTI-VITAMINS [Concomitant]
     Dosage: 1 TAB
     Route: 048
     Dates: start: 20050101
  17. LOVASTATIN [Concomitant]
     Dosage: 40 MG, QD
     Route: 048
  18. CASANTHRANOL W/DOCUSATE SODIUM [Concomitant]
     Dosage: 2 CAPS
     Dates: start: 20110710
  19. PRILOSEC [Concomitant]
     Dosage: 20 MG, QD
     Route: 048
  20. CYCLOBENZAPRINE [Suspect]
     Dosage: 20 MG, QHS
     Route: 048
     Dates: end: 20110801
  21. PLACEBO [Suspect]
     Indication: CARDIOVASCULAR DISORDER
     Dosage: CODE NOT BROKEN
     Route: 048
     Dates: start: 20090619, end: 20110709
  22. CYCLOBENZAPRINE [Suspect]
     Dosage: 05 MG, QHS
     Route: 048
     Dates: start: 20110804
  23. BLINDED ALISKIREN [Suspect]
     Indication: CARDIOVASCULAR DISORDER
     Dosage: CODE NOT BROKEN
     Route: 048
     Dates: start: 20090619, end: 20110709
  24. GLUCOSAMINE W/CHONDROITIN [Concomitant]
     Route: 048
  25. NAPROXEN [Concomitant]
     Dosage: 500 MG, BID
     Route: 048
  26. POLYETHYLENE GLYCOL [Concomitant]
  27. OMEPRAZOLE [Concomitant]

REACTIONS (9)
  - VOMITING [None]
  - DEHYDRATION [None]
  - CONCOMITANT DISEASE PROGRESSION [None]
  - FIBULA FRACTURE [None]
  - VERTIGO [None]
  - ELECTROLYTE IMBALANCE [None]
  - SYNCOPE [None]
  - URINARY TRACT INFECTION [None]
  - NAUSEA [None]
